FAERS Safety Report 20173632 (Version 5)
Quarter: 2022Q2

REPORT INFORMATION
  Report Type: Report from Study
  Country: IL (occurrence: IL)
  Receive Date: 20211212
  Receipt Date: 20220602
  Transmission Date: 20220720
  Serious: Yes (Other)
  Sender: FDA-Public Use
  Company Number: IL-ABBVIE-21K-082-4193577-00

PATIENT
  Sex: Male

DRUGS (3)
  1. CARBIDOPA\LEVODOPA [Suspect]
     Active Substance: CARBIDOPA\LEVODOPA
     Indication: Parkinson^s disease
     Route: 050
     Dates: start: 20160507
  2. CARBIDOPA\LEVODOPA [Suspect]
     Active Substance: CARBIDOPA\LEVODOPA
     Dosage: MORNING DOSAGE(ML)  9.0, CONTINUOUS DOSAGE (ML/H)  3.7, EXTRA DOSAGE (ML)  1.5
     Route: 050
  3. ASTONIN [Concomitant]
     Indication: Blood pressure orthostatic abnormal

REACTIONS (4)
  - Presyncope [Recovering/Resolving]
  - Blood pressure orthostatic abnormal [Unknown]
  - Dizziness [Unknown]
  - Device issue [Unknown]
